FAERS Safety Report 21075898 (Version 2)
Quarter: 2022Q4

REPORT INFORMATION
  Report Type: Report from Study
  Country: US (occurrence: US)
  Receive Date: 20220713
  Receipt Date: 20221007
  Transmission Date: 20230112
  Serious: Yes (Hospitalization)
  Sender: FDA-Public Use
  Company Number: US-BRISTOL-MYERS SQUIBB COMPANY-2022-067371

PATIENT
  Age: 89 Year
  Sex: Male
  Weight: 94.98 kg

DRUGS (2)
  1. REVLIMID [Suspect]
     Active Substance: LENALIDOMIDE
     Indication: Illness
     Dosage: FREQUENCY : DAILY 21 DAYS, THEN 7 DAYS OFF,?LOT NUMBER: A3735A EXPIRY DATE: 31-AUG-2024
     Route: 048
     Dates: start: 20210917
  2. HYDROCHLOROTHIAZIDE [Suspect]
     Active Substance: HYDROCHLOROTHIAZIDE
     Indication: Product used for unknown indication
     Route: 065

REACTIONS (2)
  - Hospitalisation [Unknown]
  - Hypotension [Recovered/Resolved]
